FAERS Safety Report 5172485-7 (Version None)
Quarter: 2006Q4

REPORT INFORMATION
  Report Type: 
  Country: None (occurrence: None)
  Receive Date: 20061205
  Receipt Date: 20061127
  Transmission Date: 20070319
  Serious: No
  Sender: FDA-Public Use
  Company Number: E2090-00121-SPO-DE

PATIENT
  Age: 30 Year
  Sex: Female
  Weight: 50 kg

DRUGS (2)
  1. ZONEGRAN [Suspect]
     Indication: EPILEPSY
     Dosage: 50 MG, 2 IN 1 D, ORAL
     Route: 048
     Dates: start: 20061011, end: 20061025
  2. TOPAMAX [Suspect]
     Indication: EPILEPSY
     Dosage: 300 MG, 2 IN 1 D, ORAL
     Route: 048
     Dates: start: 20050101

REACTIONS (3)
  - CONDITION AGGRAVATED [None]
  - CONVULSION [None]
  - DRUG INTERACTION [None]
